FAERS Safety Report 11505537 (Version 1)
Quarter: 2015Q3

REPORT INFORMATION
  Report Type: Spontaneous
  Country: US (occurrence: US)
  Receive Date: 20150915
  Receipt Date: 20150915
  Transmission Date: 20151125
  Serious: No
  Sender: FDA-Public Use
  Company Number: US-ROCHE-718841

PATIENT
  Age: 57 Year
  Sex: Female

DRUGS (9)
  1. PEGASYS [Suspect]
     Active Substance: PEGINTERFERON ALFA-2A
     Indication: HEPATITIS C
     Dosage: FORM: PRE-FILLED SYRINGE; THERAPY SUSPENDED FOR TWO MONTHS
     Route: 065
  2. ADVAIR HFA [Concomitant]
     Active Substance: FLUTICASONE PROPIONATE\SALMETEROL XINAFOATE
     Indication: CHRONIC OBSTRUCTIVE PULMONARY DISEASE
     Route: 055
  3. XANAX [Concomitant]
     Active Substance: ALPRAZOLAM
     Indication: DEPRESSION
     Dosage: DAILY
     Route: 065
  4. COPEGUS [Suspect]
     Active Substance: RIBAVIRIN
     Dosage: DOSAGE REDUCED
     Route: 065
  5. CELEXA [Concomitant]
     Active Substance: CITALOPRAM HYDROBROMIDE
     Indication: DEPRESSION
     Route: 065
  6. NEURONTIN [Concomitant]
     Active Substance: GABAPENTIN
     Indication: NEUROPATHY PERIPHERAL
     Route: 065
  7. COPEGUS [Suspect]
     Active Substance: RIBAVIRIN
     Indication: HEPATITIS C
     Dosage: DIVIDED DOSES; TREATMENT SUSPENDED FOR TWO MONTHS.
     Route: 065
  8. ALBUTEROL. [Concomitant]
     Active Substance: ALBUTEROL
     Indication: CHRONIC OBSTRUCTIVE PULMONARY DISEASE
     Route: 065
  9. PEGASYS [Suspect]
     Active Substance: PEGINTERFERON ALFA-2A
     Route: 065

REACTIONS (18)
  - Pyrexia [Unknown]
  - Myalgia [Unknown]
  - Alopecia [Recovering/Resolving]
  - Red blood cell count decreased [Unknown]
  - Headache [Unknown]
  - Confusional state [Unknown]
  - Dysgeusia [Recovered/Resolved]
  - Fatigue [Unknown]
  - Pain in extremity [Not Recovered/Not Resolved]
  - Chills [Unknown]
  - Depression [Unknown]
  - Ear pain [Recovered/Resolved]
  - Dizziness [Not Recovered/Not Resolved]
  - Diarrhoea [Unknown]
  - White blood cell count decreased [Unknown]
  - Nausea [Unknown]
  - Irritability [Unknown]
  - Fall [Unknown]

NARRATIVE: CASE EVENT DATE: 20100727
